FAERS Safety Report 8209429-7 (Version None)
Quarter: 2012Q1

REPORT INFORMATION
  Report Type: 
  Country: None (occurrence: None)
  Receive Date: 20120314
  Receipt Date: 20120312
  Transmission Date: 20120608
  Serious: Yes (Other)
  Sender: FDA-Public Use
  Company Number: US-PFIZER INC-2012033700

PATIENT
  Sex: Male
  Weight: 83.9 kg

DRUGS (10)
  1. LEVOTHYROXINE [Concomitant]
     Indication: MEMORY IMPAIRMENT
     Dosage: 50 UG, DAILY
  2. LISINOPRIL [Concomitant]
     Indication: HYPERTENSION
     Dosage: 50 MG, DAILY
  3. LIPITOR [Suspect]
     Dosage: UNK
  4. GABAPENTIN [Concomitant]
     Indication: ARTHROPATHY
     Dosage: 300 MG, 3X/DAY
  5. ACARBOSE [Concomitant]
     Indication: DIABETES MELLITUS
     Dosage: 50 MG, 3X/DAY
  6. GLIPIZIDE [Concomitant]
     Indication: DIABETES MELLITUS
     Dosage: 5 MG, 2X/DAY
  7. AMLODIPINE [Concomitant]
     Indication: HYPERTENSION
     Dosage: 5 MG, DAILY
  8. METFORMIN [Concomitant]
     Indication: DIABETES MELLITUS
     Dosage: 1000 MG, 2X/DAY
  9. METOPROLOL SUCCINATE [Concomitant]
     Indication: HYPERTENSION
     Dosage: 50 MG, DAILY
  10. LIPITOR [Suspect]
     Indication: BLOOD CHOLESTEROL INCREASED
     Dosage: 40 MG, DAILY

REACTIONS (3)
  - VISUAL IMPAIRMENT [None]
  - ARTHROPATHY [None]
  - WEIGHT DECREASED [None]
